FAERS Safety Report 8003577-2 (Version None)
Quarter: 2011Q4

REPORT INFORMATION
  Report Type: 
  Country: None (occurrence: None)
  Receive Date: 20111222
  Receipt Date: 20111219
  Transmission Date: 20120403
  Serious: Yes (Death)
  Sender: FDA-Public Use
  Company Number: US-PFIZER INC-2011309721

PATIENT
  Age: 82 Year
  Sex: Male

DRUGS (4)
  1. SERTRALINE HYDROCHLORIDE [Suspect]
     Dosage: UNK
  2. CARBAMAZEPINE [Suspect]
     Dosage: UNK
  3. CARBON MONOXIDE [Suspect]
     Dosage: UNK
  4. DIAZEPAM [Suspect]
     Dosage: UNK

REACTIONS (3)
  - COMPLETED SUICIDE [None]
  - RESPIRATORY ARREST [None]
  - CARDIAC ARREST [None]
